FAERS Safety Report 13078605 (Version 1)
Quarter: 2017Q1

REPORT INFORMATION
  Report Type: Other
  Country: ES (occurrence: ES)
  Receive Date: 20170102
  Receipt Date: 20170102
  Transmission Date: 20170428
  Serious: Yes (Death, Hospitalization)
  Sender: FDA-Public Use
  Company Number: ES-NOVEL LABORATORIES, INC-2017-00025

PATIENT
  Age: 47 Year
  Sex: Male

DRUGS (3)
  1. SULPHAMETHOXAZOLE [Suspect]
     Active Substance: SULFAMETHOXAZOLE
     Indication: PNEUMONIA
     Route: 065
  2. EMTRICITABIN / TENOFOVIR DISOPROXIL / EFAVIRENZ [Suspect]
     Active Substance: EFAVIRENZ\EMTRICITABINE\TENOFOVIR DISOPROXIL FUMARATE
     Indication: PNEUMONIA
     Dosage: 245-200 MG
     Route: 065
  3. TRIMETHOPRIM. [Suspect]
     Active Substance: TRIMETHOPRIM
     Indication: PNEUMONIA
     Route: 065

REACTIONS (1)
  - Agranulocytosis [Fatal]
